FAERS Safety Report 21349598 (Version 1)
Quarter: 2022Q3

REPORT INFORMATION
  Report Type: Spontaneous
  Country: CO (occurrence: CO)
  Receive Date: 20220919
  Receipt Date: 20220919
  Transmission Date: 20221027
  Serious: Yes (Other)
  Sender: FDA-Public Use
  Company Number: CO-AMGEN-COLSP2022130049

PATIENT
  Age: 39 Year
  Sex: Female
  Weight: 51 kg

DRUGS (5)
  1. MVASI [Suspect]
     Active Substance: BEVACIZUMAB-AWWB
     Indication: Cervix carcinoma stage III
     Dosage: 100 MILLIGRAM, QD
     Route: 042
     Dates: start: 20220221
  2. PEMETREXED [Concomitant]
     Active Substance: PEMETREXED
     Indication: Cervix carcinoma stage III
     Dosage: 100 MILLIGRAM, QD
     Route: 042
     Dates: start: 20220221
  3. ONDANSETRON [Concomitant]
     Active Substance: ONDANSETRON
     Indication: Cervix carcinoma stage III
     Dosage: UNK, QD
     Route: 042
     Dates: start: 20220221
  4. DEXAMETHASONE PHOSPHATE [Concomitant]
     Active Substance: DEXAMETHASONE PHOSPHATE
     Indication: Cervix carcinoma stage III
     Dosage: UNK, QD
     Route: 030
     Dates: start: 20220221
  5. VITAMIN B12 [Concomitant]
     Active Substance: CYANOCOBALAMIN
     Indication: Cervix carcinoma stage III
     Dosage: UNK
     Route: 030
     Dates: start: 20220221

REACTIONS (3)
  - Rectal ulcer [Recovering/Resolving]
  - Fungal skin infection [Not Recovered/Not Resolved]
  - Pelvic pain [Not Recovered/Not Resolved]

NARRATIVE: CASE EVENT DATE: 20220711
